FAERS Safety Report 9288576 (Version 2)
Quarter: 2013Q2

REPORT INFORMATION
  Report Type: Spontaneous
  Country: US (occurrence: US)
  Receive Date: 20130514
  Receipt Date: 20130520
  Transmission Date: 20140414
  Serious: Yes (Hospitalization)
  Sender: FDA-Public Use
  Company Number: US-BAXTER-2013BAX017259

PATIENT
  Sex: Female

DRUGS (2)
  1. DIANEAL LOW CALCIUM [Suspect]
     Indication: PERITONEAL DIALYSIS
     Route: 033
     Dates: start: 2013
  2. DIANEAL LOW CALCIUM [Suspect]
     Indication: PERITONEAL DIALYSIS
     Route: 033
     Dates: start: 2013

REACTIONS (6)
  - Chest pain [Recovering/Resolving]
  - Pericardial effusion [Recovering/Resolving]
  - Pleural effusion [Recovering/Resolving]
  - Blood potassium increased [Recovering/Resolving]
  - Dyspnoea [Recovering/Resolving]
  - Discomfort [Unknown]
